FAERS Safety Report 7507958-2 (Version None)
Quarter: 2011Q2

REPORT INFORMATION
  Report Type: 
  Country: None (occurrence: None)
  Receive Date: 20110527
  Receipt Date: 20110524
  Transmission Date: 20111010
  Serious: Yes (Death, Hospitalization)
  Sender: FDA-Public Use
  Company Number: US-B.I. PHARMACEUTICALS,INC./RIDGEFIELD-2010-BP-15266BP

PATIENT
  Sex: Female

DRUGS (30)
  1. BROVANA [Concomitant]
     Indication: CARDIOMYOPATHY
  2. FLONASE [Concomitant]
     Indication: SEASONAL ALLERGY
  3. LISINOPRIL [Concomitant]
     Indication: HYPERTENSION
     Dosage: 20 MG
  4. SPIRIVA [Suspect]
     Indication: CHRONIC OBSTRUCTIVE PULMONARY DISEASE
     Dosage: 18 MCG
     Route: 055
     Dates: start: 20100729
  5. BROVANA [Concomitant]
     Indication: CORONARY ARTERY DISEASE
  6. SYMBICORT [Concomitant]
     Dosage: 4 PUF
  7. FOSAMAX [Concomitant]
     Indication: OSTEOPOROSIS
     Dosage: 10 MG
  8. VITAMIN D [Concomitant]
     Indication: ROUTINE HEALTH MAINTENANCE
  9. SPIRIVA [Suspect]
     Indication: EMPHYSEMA
  10. WELLBUTRIN SR [Concomitant]
     Indication: DEPRESSION
     Dosage: 81 MG
  11. TRAZODONE HCL [Concomitant]
  12. ALBUTEROL SULFATE AUTOHALER [Concomitant]
     Indication: CHRONIC OBSTRUCTIVE PULMONARY DISEASE
  13. ALBUTEROL SULFATE AUTOHALER [Concomitant]
     Indication: EMPHYSEMA
  14. ALBUTEROL SULFATE AUTOHALER [Concomitant]
     Indication: CORONARY ARTERY DISEASE
  15. CELEXA [Concomitant]
     Indication: DEPRESSION
     Dosage: 40 MG
  16. PROVENTIL [Concomitant]
     Indication: RESPIRATORY DISORDER
     Dosage: 8 PUF
  17. PREDNISONE [Concomitant]
     Indication: RESPIRATORY DISORDER
  18. VITAMIN MULTI [Concomitant]
     Indication: ROUTINE HEALTH MAINTENANCE
  19. NEXIUM [Concomitant]
     Indication: GASTROOESOPHAGEAL REFLUX DISEASE
     Dosage: 40 MG
  20. BROVANA [Concomitant]
     Indication: CHRONIC OBSTRUCTIVE PULMONARY DISEASE
  21. BROVANA [Concomitant]
     Indication: EMPHYSEMA
  22. PREDNISONE [Concomitant]
     Indication: CORONARY ARTERY DISEASE
     Dosage: 20 MG
  23. ASPIRIN [Concomitant]
     Indication: CARDIAC DISORDER
     Dosage: 81 MG
  24. CALCIUM CARBONATE [Concomitant]
     Indication: OSTEOPOROSIS
     Dosage: 1800 MG
  25. TYLENOL REG [Concomitant]
  26. SIMVASTATIN [Concomitant]
     Indication: BLOOD CHOLESTEROL INCREASED
     Dosage: 40 MG
  27. CLARITIN [Concomitant]
     Indication: SEASONAL ALLERGY
     Dosage: 10 MG
  28. ALBUTEROL SULFATE AUTOHALER [Concomitant]
     Indication: CARDIOMYOPATHY
  29. CHANTIX [Concomitant]
     Indication: TOBACCO USER
     Dosage: 1 MG
  30. MUCINEX [Concomitant]
     Indication: RESPIRATORY DISORDER

REACTIONS (1)
  - CARDIAC ARREST [None]
